FAERS Safety Report 21589411 (Version 1)
Quarter: 2022Q4

REPORT INFORMATION
  Report Type: Spontaneous
  Country: CA (occurrence: CA)
  Receive Date: 20221114
  Receipt Date: 20221114
  Transmission Date: 20230113
  Serious: Yes (Hospitalization, Other)
  Sender: FDA-Public Use
  Company Number: CA-002147023-NVSC2022CA251369

PATIENT
  Age: 53 Year
  Sex: Male
  Weight: 101 kg

DRUGS (13)
  1. LENALIDOMIDE [Suspect]
     Active Substance: LENALIDOMIDE
     Indication: Plasma cell myeloma
     Dosage: UNK
     Route: 065
  2. DEXAMETHASONE [Suspect]
     Active Substance: DEXAMETHASONE
     Indication: Plasma cell myeloma
     Dosage: UNK
     Route: 065
  3. CARFILZOMIB [Suspect]
     Active Substance: CARFILZOMIB
     Indication: Plasma cell myeloma
     Dosage: UNK
     Route: 065
  4. CARFILZOMIB [Suspect]
     Active Substance: CARFILZOMIB
     Dosage: 158 MG, QD
     Route: 042
  5. CARFILZOMIB [Suspect]
     Active Substance: CARFILZOMIB
     Dosage: 154 MG
     Route: 042
  6. CARFILZOMIB [Suspect]
     Active Substance: CARFILZOMIB
     Dosage: UNK
     Route: 042
  7. CARFILZOMIB [Suspect]
     Active Substance: CARFILZOMIB
     Dosage: 154 MG
     Route: 042
  8. CARFILZOMIB [Suspect]
     Active Substance: CARFILZOMIB
     Dosage: 100 MG, QW
     Route: 042
  9. CARFILZOMIB [Suspect]
     Active Substance: CARFILZOMIB
     Dosage: 156 MG
     Route: 042
  10. CARFILZOMIB [Suspect]
     Active Substance: CARFILZOMIB
     Dosage: 126 MG, QW
     Route: 042
  11. CARFILZOMIB [Suspect]
     Active Substance: CARFILZOMIB
     Dosage: 100 MG, QW
     Route: 042
  12. CARFILZOMIB [Suspect]
     Active Substance: CARFILZOMIB
     Dosage: 154 MG
     Route: 042
  13. CARFILZOMIB [Suspect]
     Active Substance: CARFILZOMIB
     Dosage: 154 MG
     Route: 042

REACTIONS (6)
  - Dry mouth [Not Recovered/Not Resolved]
  - Dyspnoea [Not Recovered/Not Resolved]
  - Fatigue [Not Recovered/Not Resolved]
  - Plasma cell myeloma [Not Recovered/Not Resolved]
  - Pyrexia [Not Recovered/Not Resolved]
  - SARS-CoV-2 test positive [Not Recovered/Not Resolved]
